FAERS Safety Report 4454355-2 (Version None)
Quarter: 2004Q3

REPORT INFORMATION
  Report Type: 
  Country: None (occurrence: None)
  Receive Date: 20040920
  Receipt Date: 20040706
  Transmission Date: 20050211
  Serious: Yes (Death)
  Sender: FDA-Public Use
  Company Number: NZ-MERCK-0407NZL00013

PATIENT
  Sex: Female

DRUGS (4)
  1. AMITRIPTYLINE HYDROCHLORIDE [Concomitant]
     Route: 048
     Dates: start: 20020101
  2. ANASTROZOLE [Concomitant]
     Route: 048
     Dates: start: 19880101
  3. OMEPRAZOLE [Concomitant]
     Route: 048
     Dates: start: 20020101
  4. VIOXX [Suspect]
     Route: 048
     Dates: start: 20030101

REACTIONS (4)
  - BREAST CANCER METASTATIC [None]
  - MOUTH ULCERATION [None]
  - OEDEMA PERIPHERAL [None]
  - VENA CAVA EMBOLISM [None]
